FAERS Safety Report 6146767-6 (Version None)
Quarter: 2009Q2

REPORT INFORMATION
  Report Type: 
  Country: None (occurrence: None)
  Receive Date: 20090407
  Receipt Date: 20090402
  Transmission Date: 20091009
  Serious: Yes (Other)
  Sender: FDA-Public Use
  Company Number: GB-BRISTOL-MYERS SQUIBB COMPANY-14557730

PATIENT
  Age: 34 Year
  Sex: Female

DRUGS (3)
  1. ABILIFY [Suspect]
     Indication: PSYCHOTIC DISORDER
     Route: 048
     Dates: start: 20041201
  2. DIAZEPAM [Suspect]
     Indication: AGITATION
     Route: 048
  3. VERAPAMIL [Concomitant]
     Indication: WOLFF-PARKINSON-WHITE SYNDROME
     Route: 048
     Dates: start: 20080901

REACTIONS (2)
  - ELECTROCARDIOGRAM QT PROLONGED [None]
  - TACHYCARDIA [None]
